FAERS Safety Report 14297172 (Version 2)
Quarter: 2018Q1

REPORT INFORMATION
  Report Type: Spontaneous
  Country: US (occurrence: US)
  Receive Date: 20171218
  Receipt Date: 20180209
  Transmission Date: 20180509
  Serious: Yes (Hospitalization)
  Sender: FDA-Public Use
  Company Number: US-009507513-1712USA008481

PATIENT
  Age: 71 Year
  Sex: Male

DRUGS (1)
  1. CUBICIN [Suspect]
     Active Substance: DAPTOMYCIN
     Dosage: 6 OR 8 MG/KG DOSE EVERY 24 HOURS
     Route: 042

REACTIONS (1)
  - Eosinophilic pneumonia [Recovering/Resolving]
